FAERS Safety Report 13684611 (Version 2)
Quarter: 2017Q2

REPORT INFORMATION
  Report Type: Spontaneous
  Country: US (occurrence: US)
  Receive Date: 20170623
  Receipt Date: 20170630
  Transmission Date: 20170830
  Serious: Yes (Other)
  Sender: FDA-Public Use
  Company Number: US-TEVA-779766USA

PATIENT
  Age: 58 Year
  Sex: Male
  Weight: 85.81 kg

DRUGS (4)
  1. DEPAKOTE [Concomitant]
     Active Substance: DIVALPROEX SODIUM
  2. PROVIGIL [Suspect]
     Active Substance: MODAFINIL
     Indication: HYPERSOMNIA
     Route: 065
     Dates: start: 201702
  3. NUVIGIL [Suspect]
     Active Substance: ARMODAFINIL
     Indication: HYPERSOMNIA
     Route: 065
  4. XANAX [Concomitant]
     Active Substance: ALPRAZOLAM
     Indication: ANXIETY

REACTIONS (10)
  - Muscle spasms [Unknown]
  - Brain injury [Unknown]
  - Fall [Unknown]
  - Abasia [Unknown]
  - Drug ineffective [Unknown]
  - Paranoia [Unknown]
  - Somnolence [Unknown]
  - Weight decreased [Unknown]
  - Metabolic disorder [Unknown]
  - Product label issue [Unknown]

NARRATIVE: CASE EVENT DATE: 201703
